FAERS Safety Report 6715993-7 (Version None)
Quarter: 2010Q2

REPORT INFORMATION
  Report Type: 
  Country: None (occurrence: None)
  Receive Date: 20100507
  Receipt Date: 20100426
  Transmission Date: 20101027
  Serious: Yes (Death)
  Sender: FDA-Public Use
  Company Number: JP-PFIZER INC-2010053710

PATIENT
  Age: 78 Year
  Sex: Male

DRUGS (10)
  1. AZULFIDINE [Suspect]
     Indication: RHEUMATOID ARTHRITIS
     Dosage: 1000 MG/DAY
     Route: 048
     Dates: start: 20100226, end: 20100418
  2. ALENDRONATE SODIUM [Concomitant]
     Route: 048
  3. TAKEPRON [Concomitant]
  4. PREDONINE [Concomitant]
     Route: 048
  5. GLUFAST [Concomitant]
     Route: 048
  6. INSULIN DETEMIR [Concomitant]
     Route: 058
  7. ASPIRIN [Concomitant]
     Route: 048
  8. CALBLOCK [Concomitant]
     Route: 048
  9. OLMESARTAN MEDOXOMIL [Concomitant]
     Route: 048
  10. MONTELUKAST SODIUM [Concomitant]
     Route: 048

REACTIONS (1)
  - LEUKOPENIA [None]
